FAERS Safety Report 8330113-3 (Version None)
Quarter: 2012Q2

REPORT INFORMATION
  Report Type: 
  Country: None (occurrence: None)
  Receive Date: 20120502
  Receipt Date: 20100112
  Transmission Date: 20120825
  Serious: No
  Sender: FDA-Public Use
  Company Number: US-TEVA-2010000196

PATIENT
  Sex: Male
  Weight: 81.72 kg

DRUGS (4)
  1. ZOLOFT [Concomitant]
     Dates: start: 20090701
  2. NUVIGIL [Suspect]
     Indication: EPSTEIN-BARR VIRUS INFECTION
     Route: 048
     Dates: start: 20091101
  3. PREDNISONE [Concomitant]
     Indication: POLYMYALGIA RHEUMATICA
     Dosage: 5 MILLIGRAM;
     Dates: start: 20080101
  4. LISINOPRIL [Concomitant]
     Indication: HYPERTENSION
     Dates: start: 20070101

REACTIONS (1)
  - BLOOD CHOLESTEROL INCREASED [None]
